FAERS Safety Report 8888721 (Version 2)
Quarter: 2013Q1

REPORT INFORMATION
  Report Type: Spontaneous
  Country: US (occurrence: US)
  Receive Date: 20121106
  Receipt Date: 20130306
  Transmission Date: 20140127
  Serious: Yes (Other)
  Sender: FDA-Public Use
  Company Number: US-PFIZER INC-2012271692

PATIENT
  Age: 58 Year
  Sex: Male
  Weight: 103 kg

DRUGS (8)
  1. GLIPIZIDE [Suspect]
     Indication: BLOOD GLUCOSE ABNORMAL
     Dosage: 2.5 MG,DAILY
     Route: 048
  2. GLUCOPHAGE [Concomitant]
     Indication: BLOOD GLUCOSE ABNORMAL
     Dosage: 1000 MG, 2X/DAY
  3. PROCARDIA XL [Concomitant]
     Indication: BLOOD PRESSURE ABNORMAL
     Dosage: 60 MG, DAILY
  4. LABETALOL [Concomitant]
     Indication: BLOOD PRESSURE ABNORMAL
     Dosage: 200 MG, 2X/DAY
  5. ACCUPRIL [Concomitant]
     Indication: BLOOD PRESSURE ABNORMAL
     Dosage: 40 MG, DAILY
  6. DYAZIDE [Concomitant]
     Indication: BLOOD PRESSURE ABNORMAL
     Dosage: 3.75/25 MG, DAILY
  7. ZETIA [Concomitant]
     Indication: BLOOD CHOLESTEROL ABNORMAL
     Dosage: 10 MG, DAILY
  8. LIPITOR [Concomitant]
     Indication: BLOOD CHOLESTEROL ABNORMAL
     Dosage: 20 MG, DAILY

REACTIONS (3)
  - Blood glucose fluctuation [Unknown]
  - Medication residue present [Unknown]
  - Product solubility abnormal [Unknown]
